FAERS Safety Report 5397750-X (Version None)
Quarter: 2007Q3

REPORT INFORMATION
  Report Type: 
  Country: None (occurrence: None)
  Receive Date: 20070726
  Receipt Date: 20070720
  Transmission Date: 20080115
  Serious: Yes (Other)
  Sender: FDA-Public Use
  Company Number: A0665379A

PATIENT
  Age: 40 Year
  Sex: Male

DRUGS (5)
  1. FLONASE [Suspect]
     Dosage: 2PUFF TWICE PER DAY
     Route: 045
  2. PAXIL [Suspect]
     Indication: DEPRESSION
     Dosage: 2.5MG PER DAY
     Route: 048
     Dates: start: 20020101
  3. NASONEX [Concomitant]
  4. XANAX [Concomitant]
  5. INDERAL [Concomitant]

REACTIONS (5)
  - BLOOD CORTISOL DECREASED [None]
  - EPISTAXIS [None]
  - HAND FRACTURE [None]
  - SEXUAL DYSFUNCTION [None]
  - WEIGHT INCREASED [None]
